FAERS Safety Report 23302070 (Version 3)
Quarter: 2024Q1

REPORT INFORMATION
  Report Type: Report from Study
  Country: US (occurrence: US)
  Receive Date: 20231215
  Receipt Date: 20240112
  Transmission Date: 20240409
  Serious: Yes (Hospitalization, Other)
  Sender: FDA-Public Use
  Company Number: US-ABBVIE-5532101

PATIENT
  Age: 57 Year
  Sex: Female

DRUGS (3)
  1. HUMIRA [Suspect]
     Active Substance: ADALIMUMAB
     Indication: Colitis ulcerative
     Dosage: FORM STRENGTH: 40 MG, DISCONTINUED IN 2023
     Route: 058
     Dates: start: 20230615
  2. HUMIRA [Suspect]
     Active Substance: ADALIMUMAB
  3. HUMIRA [Suspect]
     Active Substance: ADALIMUMAB
     Dosage: FORM STRENGTH: 40 MG
     Route: 058
     Dates: start: 2023

REACTIONS (9)
  - Transient ischaemic attack [Recovering/Resolving]
  - Gastrointestinal haemorrhage [Unknown]
  - Pain [Unknown]
  - Fall [Unknown]
  - Seizure [Unknown]
  - Abdominal discomfort [Unknown]
  - Speech disorder [Recovering/Resolving]
  - Adverse food reaction [Unknown]
  - Arthralgia [Unknown]

NARRATIVE: CASE EVENT DATE: 20231206
